FAERS Safety Report 10089414 (Version 2)
Quarter: 2014Q3

REPORT INFORMATION
  Report Type: Spontaneous
  Country: AU (occurrence: None)
  Receive Date: 20140417
  Receipt Date: 20140722
  Transmission Date: 20150326
  Serious: Yes (Life-Threatening, Other)
  Sender: FDA-Public Use
  Company Number: AUR-APL-2014-04652

PATIENT
  Age: 0 Day
  Sex: Female

DRUGS (2)
  1. XANAX [Suspect]
     Active Substance: ALPRAZOLAM
     Indication: PRODUCT USED FOR UNKNOWN INDICATION
     Route: 064
  2. AURO-QUETIAPINE 200 (QUETIAPINE) FILM-COATED TABLET, 200MG [Suspect]
     Active Substance: QUETIAPINE
     Indication: PRODUCT USED FOR UNKNOWN INDICATION
     Dosage: 1 IN 1 D
     Route: 064

REACTIONS (5)
  - Foetal exposure during pregnancy [None]
  - Hypothermia neonatal [None]
  - Hypoglycaemia neonatal [None]
  - Caesarean section [None]
  - Drug withdrawal syndrome neonatal [None]

NARRATIVE: CASE EVENT DATE: 20120207
